FAERS Safety Report 9628053 (Version 1)
Quarter: 2013Q4

REPORT INFORMATION
  Report Type: Spontaneous
  Country: GB (occurrence: GB)
  Receive Date: 20131016
  Receipt Date: 20131016
  Transmission Date: 20140711
  Serious: Yes (Hospitalization, Other)
  Sender: FDA-Public Use
  Company Number: GB-009507513-1310GBR005827

PATIENT
  Sex: Male

DRUGS (6)
  1. SINEMET PLUS [Suspect]
     Route: 048
  2. ROTIGOTINE [Concomitant]
  3. OMEPRAZOLE [Concomitant]
  4. ASPIRIN [Concomitant]
     Route: 048
  5. ATORVASTATIN [Concomitant]
  6. RAMIPRIL [Concomitant]

REACTIONS (7)
  - Throat cancer [Unknown]
  - Myocardial infarction [Unknown]
  - Dysphagia [Not Recovered/Not Resolved]
  - Drug dose omission [Unknown]
  - Parkinson^s disease [Unknown]
  - Dehydration [Unknown]
  - Radiotherapy [Unknown]
